FAERS Safety Report 20061326 (Version 1)
Quarter: 2021Q4

REPORT INFORMATION
  Report Type: Spontaneous
  Country: US (occurrence: US)
  Receive Date: 20211112
  Receipt Date: 20211112
  Transmission Date: 20220303
  Serious: No
  Sender: FDA-Public Use
  Company Number: US-AMGEN-USASP2021171608

PATIENT
  Age: 65 Year

DRUGS (1)
  1. REPATHA [Suspect]
     Active Substance: EVOLOCUMAB
     Indication: Product used for unknown indication
     Dosage: 420 MILLIGRAM, QMO
     Route: 065
     Dates: start: 202110

REACTIONS (4)
  - Injection site mass [Recovering/Resolving]
  - Accident at work [Unknown]
  - Wrong technique in product usage process [Unknown]
  - Injection site inflammation [Recovering/Resolving]

NARRATIVE: CASE EVENT DATE: 20211101
